FAERS Safety Report 15923461 (Version 1)
Quarter: 2019Q1

REPORT INFORMATION
  Report Type: Spontaneous
  Country: DE (occurrence: DE)
  Receive Date: 20190206
  Receipt Date: 20190206
  Transmission Date: 20190417
  Serious: Yes (Hospitalization)
  Sender: FDA-Public Use
  Company Number: DE-ACCORD-105380

PATIENT
  Age: 28 Year
  Sex: Female

DRUGS (3)
  1. TAVOR [Concomitant]
     Dosage: 1 MG,  AS NEEDED
  2. QUETIAPINE. [Suspect]
     Active Substance: QUETIAPINE
     Indication: PRODUCT USED FOR UNKNOWN INDICATION
     Dosage: 125 MG, NK
  3. SERTRALINE [Concomitant]
     Active Substance: SERTRALINE HYDROCHLORIDE
     Dosage: NK MG, NEW AS OF 08.12.2016

REACTIONS (1)
  - Tension [Unknown]

NARRATIVE: CASE EVENT DATE: 20161208
